FAERS Safety Report 8451772-0 (Version None)
Quarter: 2012Q2

REPORT INFORMATION
  Report Type: 
  Country: None (occurrence: None)
  Receive Date: 20120620
  Receipt Date: 20120522
  Transmission Date: 20120825
  Serious: No
  Sender: FDA-Public Use
  Company Number: US-VERTEX PHARMACEUTICALS INC.-AE-2012-003862

PATIENT
  Sex: Male
  Weight: 77.407 kg

DRUGS (10)
  1. INCIVEK [Suspect]
     Route: 048
     Dates: start: 20120402
  2. EUCERIN CREAM [Concomitant]
     Indication: PRURITUS
     Route: 061
  3. XANAX [Concomitant]
     Indication: SLEEP DISORDER
  4. PEGASYS [Concomitant]
     Indication: HEPATITIS C
     Route: 058
     Dates: start: 20120313, end: 20120317
  5. OXYCODONE HCL [Concomitant]
     Indication: BACK PAIN
     Route: 048
  6. SOMA [Concomitant]
     Indication: SLEEP DISORDER
     Route: 048
  7. INCIVEK [Suspect]
     Indication: HEPATITIS C
     Route: 048
     Dates: start: 20120313, end: 20120317
  8. PEGASYS [Concomitant]
     Route: 058
     Dates: start: 20120402
  9. COPEGUS [Concomitant]
     Indication: HEPATITIS C
     Route: 048
     Dates: start: 20120313, end: 20120317
  10. COPEGUS [Concomitant]
     Route: 048
     Dates: start: 20120402

REACTIONS (6)
  - PRURITUS [None]
  - DRUG DOSE OMISSION [None]
  - RASH GENERALISED [None]
  - OEDEMA PERIPHERAL [None]
  - VOMITING [None]
  - NAUSEA [None]
